FAERS Safety Report 6246048-6 (Version None)
Quarter: 2009Q2

REPORT INFORMATION
  Report Type: 
  Country: None (occurrence: None)
  Receive Date: 20090626
  Receipt Date: 20090317
  Transmission Date: 20091009
  Serious: No
  Sender: FDA-Public Use
  Company Number: A0761690A

PATIENT
  Sex: Female

DRUGS (3)
  1. IMITREX [Suspect]
     Indication: MIGRAINE
     Dosage: 100MG AS REQUIRED
     Route: 048
  2. IMITREX [Suspect]
     Dosage: 1INJ AS REQUIRED
  3. LEVOXYL [Concomitant]

REACTIONS (2)
  - IMPAIRED WORK ABILITY [None]
  - PRODUCT QUALITY ISSUE [None]
